FAERS Safety Report 14334860 (Version 2)
Quarter: 2017Q4

REPORT INFORMATION
  Report Type: Spontaneous
  Country: FR (occurrence: FR)
  Receive Date: 20171229
  Receipt Date: 20171229
  Transmission Date: 20180321
  Serious: Yes (Other)
  Sender: FDA-Public Use
  Company Number: FR-MERCK KGAA-2037954

PATIENT
  Age: 83 Year
  Sex: Female

DRUGS (3)
  1. NOVOTHYROX [Suspect]
     Active Substance: LEVOTHYROXINE SODIUM
     Indication: HYPOTHYROIDISM
     Dates: start: 201704, end: 201709
  2. LOXEN (NICARDIPINE HYDROCHLORIDE) [Concomitant]
     Active Substance: NICARDIPINE HYDROCHLORIDE
  3. LIPANTHYL [Concomitant]
     Active Substance: FENOFIBRATE

REACTIONS (18)
  - Dyspnoea [None]
  - Alopecia [Not Recovered/Not Resolved]
  - Fatigue [Not Recovered/Not Resolved]
  - Insomnia [Not Recovered/Not Resolved]
  - Skin wrinkling [None]
  - Decreased appetite [None]
  - Diarrhoea [None]
  - Palpitations [Not Recovered/Not Resolved]
  - Gastrointestinal disorder [None]
  - Depression [Not Recovered/Not Resolved]
  - Muscle spasms [Not Recovered/Not Resolved]
  - Blood creatinine increased [None]
  - Crying [None]
  - Constipation [None]
  - Blood pressure abnormal [None]
  - Weight decreased [None]
  - Feeling of body temperature change [None]
  - Nervousness [None]

NARRATIVE: CASE EVENT DATE: 2017
